FAERS Safety Report 6486087-3 (Version None)
Quarter: 2009Q4

REPORT INFORMATION
  Report Type: 
  Country: None (occurrence: None)
  Receive Date: 20091207
  Receipt Date: 20091124
  Transmission Date: 20100525
  Serious: Yes (Hospitalization)
  Sender: FDA-Public Use
  Company Number: 2008AL010612

PATIENT
  Age: 46 Year
  Sex: Male

DRUGS (53)
  1. MINOXIDIL [Suspect]
     Indication: ALOPECIA
     Dosage: BID;TOP
     Route: 061
     Dates: start: 20080701, end: 20080708
  2. ZOLOFT [Concomitant]
  3. LITHIUM CARBONATE [Concomitant]
  4. DEPAKOTE [Concomitant]
  5. NARCOTIC PAIN RELIEVERS [Concomitant]
  6. HYDROMORPHONE [Concomitant]
  7. LIPODERM 5% PATCH [Concomitant]
  8. CLOTRIMAZOLE BETHAMETHAZOLE DIPROPIONATE CREAM [Concomitant]
  9. MORPHINE SULFATE [Concomitant]
  10. FLOMAX [Concomitant]
  11. TRAMADOL HCL [Concomitant]
  12. COLCHICINE [Concomitant]
  13. OXYCODONE [Concomitant]
  14. OMEPRAZOLE [Concomitant]
  15. KETOROLAC TROMETHAMINE [Concomitant]
  16. PROMETHAZINE [Concomitant]
  17. NAPROXEN [Concomitant]
  18. PROMETHAZINE [Concomitant]
  19. HYDROCODONE BITARTRATE AND ACETAMINOPHEN [Concomitant]
  20. PYRIDOSTIGMINE HCL [Concomitant]
  21. ROPINIROLE [Concomitant]
  22. ZYPREXA [Concomitant]
  23. AQUAPHOR OINTMENT [Concomitant]
  24. DOCUSATE SODIUM [Concomitant]
  25. IMIPRAMINE [Concomitant]
  26. LITHIUM CARBONATE [Concomitant]
  27. METOPROLOL SUCCINATE EXTENDED RELEASE [Concomitant]
  28. PANTOPRAZOLE SODIUM DR [Concomitant]
  29. METHADONE HYDROCHLORIDE [Concomitant]
  30. CIPROFLOXACIN [Concomitant]
  31. OXYBUTYNIN CHLORIDE [Concomitant]
  32. CEPHALEXLEXIN [Concomitant]
  33. METRONIDAZOLE [Concomitant]
  34. FUROSEMIDE [Concomitant]
  35. POTASSIUM CHLORIDE [Concomitant]
  36. TERAZOSIN HCL [Concomitant]
  37. FUROSEMIDE [Concomitant]
  38. CYCLOBENZAPRINE [Concomitant]
  39. MUPIROCIN [Concomitant]
  40. IBUPROFEN [Concomitant]
  41. AMOXICILLIN AND CLAVULANATE POTASSIUM [Concomitant]
  42. PROCHLORPERAZINE [Concomitant]
  43. GEODON [Concomitant]
  44. CLOBETASOL PROPIONATE [Concomitant]
  45. FLUCONAZOLE [Concomitant]
  46. AZITHROMYCIN [Concomitant]
  47. DILTIAZEM [Concomitant]
  48. TRILEPTAL [Concomitant]
  49. ROZEREM [Concomitant]
  50. LORAZEPAM [Concomitant]
  51. ALPRAZOLAM [Concomitant]
  52. TETRACYCLINE [Concomitant]
  53. KEFLEX [Concomitant]

REACTIONS (8)
  - HAEMATEMESIS [None]
  - HYPERTENSION [None]
  - LYMPHOEDEMA [None]
  - OEDEMA [None]
  - OEDEMA PERIPHERAL [None]
  - PAIN IN EXTREMITY [None]
  - POLYMYALGIA RHEUMATICA [None]
  - SYNCOPE [None]
